FAERS Safety Report 5171100-6 (Version None)
Quarter: 2006Q4

REPORT INFORMATION
  Report Type: 
  Country: None (occurrence: None)
  Receive Date: 20061213
  Receipt Date: 20061212
  Transmission Date: 20070319
  Serious: Yes (Hospitalization)
  Sender: FDA-Public Use
  Company Number: FR-GLAXOSMITHKLINE-B0450162A

PATIENT
  Age: 36 Year
  Sex: Female
  Weight: 51 kg

DRUGS (4)
  1. CLAMOXYL [Suspect]
     Dosage: 6G PER DAY
     Route: 048
     Dates: start: 20061105, end: 20061106
  2. SULFADIAZINE [Suspect]
     Indication: CEREBRAL TOXOPLASMOSIS
     Dosage: 4G PER DAY
     Route: 048
     Dates: start: 20061105, end: 20061106
  3. PYRIMETHAMINE TAB [Concomitant]
     Indication: CEREBRAL TOXOPLASMOSIS
     Route: 065
  4. DALACINE [Concomitant]
     Route: 065

REACTIONS (3)
  - BLISTER [None]
  - PRURITUS [None]
  - TOXIC SKIN ERUPTION [None]
